FAERS Safety Report 7962830-9 (Version None)
Quarter: 2011Q4

REPORT INFORMATION
  Report Type: 
  Country: None (occurrence: None)
  Receive Date: 20111207
  Receipt Date: 20111129
  Transmission Date: 20120403
  Serious: Yes (Hospitalization)
  Sender: FDA-Public Use
  Company Number: PL-UCBSA-046685

PATIENT
  Age: 55 Year
  Sex: Male
  Weight: 76 kg

DRUGS (13)
  1. CERTOLIZUMAB PEGOL [Suspect]
     Indication: SPONDYLITIS
     Route: 058
     Dates: start: 20101118, end: 20111020
  2. BISOPROLOL FUMARATE [Concomitant]
     Indication: HYPERTENSION
     Dates: start: 19950101
  3. METHOTREXATE [Concomitant]
     Indication: SPONDYLITIS
     Dosage: 15 MG ,QS
     Dates: start: 20110406, end: 20111020
  4. HELICOIL [Concomitant]
     Indication: GASTRIC ULCER
     Dates: start: 20050101
  5. NAKLOFEN DUO [Concomitant]
     Indication: SPONDYLITIS
     Dates: start: 20100801
  6. HYGROTON [Concomitant]
     Indication: HYPERTENSION
     Dates: start: 19950101
  7. ACUPRO [Concomitant]
     Indication: HYPERTENSION
     Dates: start: 19950101
  8. LACIPRIL [Concomitant]
     Indication: HYPERTENSION
     Dates: start: 19950101
  9. XALATAN [Concomitant]
     Indication: GLAUCOMA
     Dosage: 2 DROP
     Dates: start: 19970101
  10. DETRALEX [Concomitant]
     Indication: VENOUS INSUFFICIENCY
     Dates: start: 20100101
  11. ACIDUM FOLICUM [Concomitant]
     Indication: ANAEMIA
     Dosage: 15 MG, QS
     Dates: start: 20040501, end: 20111020
  12. KALIPOZ PROLONGATUM [Concomitant]
     Indication: MINERAL SUPPLEMENTATION
     Dates: start: 20110405
  13. ATORVASTATIN [Concomitant]
     Indication: HYPERCHOLESTEROLAEMIA
     Dates: start: 20110530

REACTIONS (1)
  - TUBERCULIN TEST POSITIVE [None]
